FAERS Safety Report 9499746 (Version 2)
Quarter: 2013Q3

REPORT INFORMATION
  Report Type: Spontaneous
  Country: GB (occurrence: GB)
  Receive Date: 20130905
  Receipt Date: 20130923
  Transmission Date: 20140515
  Serious: No
  Sender: FDA-Public Use
  Company Number: GB-JNJFOC-20130901247

PATIENT
  Sex: Male

DRUGS (2)
  1. DUROGESIC DTRANS [Suspect]
     Indication: PRODUCT USED FOR UNKNOWN INDICATION
     Route: 062
  2. DUROGESIC DTRANS [Suspect]
     Indication: PRODUCT USED FOR UNKNOWN INDICATION
     Route: 062

REACTIONS (3)
  - Night sweats [Not Recovered/Not Resolved]
  - Product quality issue [Not Recovered/Not Resolved]
  - Wrong technique in drug usage process [Unknown]
